FAERS Safety Report 6914132-7 (Version None)
Quarter: 2010Q3

REPORT INFORMATION
  Report Type: 
  Country: None (occurrence: None)
  Receive Date: 20100809
  Receipt Date: 20100728
  Transmission Date: 20110219
  Serious: Yes (Hospitalization)
  Sender: FDA-Public Use
  Company Number: BR-PFIZER INC-2010091189

PATIENT
  Age: 46 Year
  Sex: Male
  Weight: 120 kg

DRUGS (4)
  1. CHAMPIX [Suspect]
     Indication: SMOKING CESSATION THERAPY
     Dosage: UNK
     Route: 048
     Dates: start: 20100708
  2. CHAMPIX [Suspect]
     Dosage: 1 MG, 1X/DAY, 1 TABLET
     Route: 048
     Dates: end: 20100720
  3. CAPTOPRIL [Concomitant]
     Indication: HYPERTENSION
     Dosage: UNK
  4. CLORANA [Concomitant]
     Indication: HYPERTENSION
     Dosage: UNK

REACTIONS (3)
  - HYPOTENSION [None]
  - NERVOUSNESS [None]
  - SYNCOPE [None]
